FAERS Safety Report 17013702 (Version 2)
Quarter: 2019Q4

REPORT INFORMATION
  Report Type: Report from Study
  Country: US (occurrence: US)
  Receive Date: 20191110
  Receipt Date: 20191204
  Transmission Date: 20200122
  Serious: Yes (Other)
  Sender: FDA-Public Use
  Company Number: PHHY2016US116257

PATIENT
  Age: 14 Year
  Sex: Male

DRUGS (1)
  1. JADENU [Suspect]
     Active Substance: DEFERASIROX
     Indication: IRON OVERLOAD
     Route: 065

REACTIONS (2)
  - Bone density decreased [Unknown]
  - Growth hormone deficiency [Unknown]

NARRATIVE: CASE EVENT DATE: 20150519
